FAERS Safety Report 8228902-9 (Version None)
Quarter: 2012Q1

REPORT INFORMATION
  Report Type: 
  Country: None (occurrence: None)
  Receive Date: 20120322
  Receipt Date: 20120314
  Transmission Date: 20120608
  Serious: Yes (Death, Hospitalization)
  Sender: FDA-Public Use
  Company Number: NL-UCBSA-053449

PATIENT
  Age: 80 Year
  Sex: Male
  Weight: 80 kg

DRUGS (5)
  1. LORAZEPAM [Suspect]
     Dosage: REDUCED DOSE
     Dates: start: 20110101
  2. KEPPRA [Suspect]
     Indication: EPILEPSY
     Dates: start: 20110719, end: 20110101
  3. LORAZEPAM [Suspect]
     Indication: RESTLESSNESS
     Dates: start: 20110715, end: 20110101
  4. DEPAKENE [Concomitant]
     Dates: start: 20110101, end: 20110101
  5. KEPPRA [Suspect]
     Dosage: REDUCED DOSE
     Dates: start: 20110101

REACTIONS (3)
  - PNEUMONIA [None]
  - ASTHENIA [None]
  - SOMNOLENCE [None]
